FAERS Safety Report 9709107 (Version 3)
Quarter: 2014Q1

REPORT INFORMATION
  Report Type: Spontaneous
  Country: US (occurrence: US)
  Receive Date: 20131125
  Receipt Date: 20140122
  Transmission Date: 20141002
  Serious: Yes (Death, Disabling, Other)
  Sender: FDA-Public Use
  Company Number: US-ACORDA-ACO_21017_2010

PATIENT
  Age: 50 Year
  Sex: Female
  Weight: 70.75 kg

DRUGS (6)
  1. AMPYRA [Suspect]
     Indication: GAIT DISTURBANCE
     Dosage: 10 MG, Q 12 HRS
     Route: 048
     Dates: start: 2009
  2. AMPYRA [Suspect]
     Dosage: 10 MG, Q 12 HRS
     Route: 048
     Dates: start: 2009
  3. REBIF [Suspect]
     Indication: MULTIPLE SCLEROSIS
     Dosage: 0.44 ?G, UNK
     Route: 030
     Dates: start: 200905
  4. VENLAFAXINE [Concomitant]
     Indication: PRODUCT USED FOR UNKNOWN INDICATION
     Dosage: 150 MG, UNK
  5. PRAMIPEXOLE [Concomitant]
     Indication: PRODUCT USED FOR UNKNOWN INDICATION
     Dosage: 0.5 MG, UNK
  6. ASPIRIN [Concomitant]
     Indication: PRODUCT USED FOR UNKNOWN INDICATION
     Dosage: UNK
     Dates: start: 200905

REACTIONS (4)
  - Dysstasia [Recovered/Resolved]
  - Muscular weakness [Recovered/Resolved]
  - Pain in extremity [Recovered/Resolved]
  - Headache [Recovered/Resolved]
